FAERS Safety Report 4771719-8 (Version None)
Quarter: 2005Q3

REPORT INFORMATION
  Report Type: 
  Country: None (occurrence: None)
  Receive Date: 20050916
  Receipt Date: 20050912
  Transmission Date: 20060218
  Serious: Yes (Other)
  Sender: FDA-Public Use
  Company Number: PHFR2005GB03032

PATIENT
  Age: 62 Year
  Sex: Female
  Weight: 74 kg

DRUGS (1)
  1. VALSARTAN [Suspect]
     Indication: HYPERTENSION
     Dosage: 40MG/DAY
     Route: 048
     Dates: start: 20040504, end: 20041001

REACTIONS (3)
  - DIARRHOEA [None]
  - JOINT SWELLING [None]
  - NIGHTMARE [None]
